FAERS Safety Report 15449679 (Version 3)
Quarter: 2019Q3

REPORT INFORMATION
  Report Type: Report from Study
  Country: JP (occurrence: JP)
  Receive Date: 20181001
  Receipt Date: 20190910
  Transmission Date: 20191004
  Serious: Yes (Death, Hospitalization, Other)
  Sender: FDA-Public Use
  Company Number: JP-ACTELION-A-CH2018-179365

PATIENT
  Age: 60 Year
  Sex: Female

DRUGS (17)
  1. TAKECAB [Concomitant]
     Active Substance: VONOPRAZAN FUMURATE
  2. GASTROM [Concomitant]
     Active Substance: ECABET SODIUM
  3. GEBEN [Concomitant]
     Active Substance: SILVER SULFADIAZINE
  4. VANCOMYCINE [Concomitant]
     Active Substance: VANCOMYCIN
  5. TRACLEER [Suspect]
     Active Substance: BOSENTAN
     Indication: SCLERODERMA ASSOCIATED DIGITAL ULCER
     Dosage: 62.5 MG, BID
     Route: 048
     Dates: start: 20170331, end: 20190228
  6. PREDONINE [Concomitant]
     Active Substance: PREDNISOLONE
  7. HEPARINOID [Concomitant]
     Active Substance: CHONDROITIN SULFATE (BOVINE)
  8. RINDERON VG [Concomitant]
     Active Substance: BETAMETHASONE VALERATE\GENTAMICIN SULFATE
  9. WARFARIN [Suspect]
     Active Substance: WARFARIN
     Indication: SKIN ULCER
     Dosage: 1-1.5 MG QD
     Route: 048
     Dates: start: 20170310, end: 20180810
  10. WYPAX [Concomitant]
     Active Substance: LORAZEPAM
  11. NEXIUM [Concomitant]
     Active Substance: ESOMEPRAZOLE MAGNESIUM
  12. HOCHUEKKITO [Concomitant]
     Active Substance: HERBALS
  13. INCREMIN [Concomitant]
     Active Substance: FERRIC PYROPHOSPHATE
  14. FOSAMAC [Concomitant]
     Active Substance: ALENDRONATE SODIUM
  15. FIBLAST [Concomitant]
  16. LOXOPROFEN NA [Concomitant]
     Active Substance: LOXOPROFEN SODIUM
  17. PROSTANDIN [Concomitant]

REACTIONS (7)
  - Sudden death [Fatal]
  - Haemoglobin decreased [Not Recovered/Not Resolved]
  - Ileus paralytic [Recovered/Resolved]
  - Anaemia [Not Recovered/Not Resolved]
  - Red blood cell count decreased [Not Recovered/Not Resolved]
  - Haemorrhagic diathesis [Not Recovered/Not Resolved]
  - Transfusion [Unknown]

NARRATIVE: CASE EVENT DATE: 20171124
